FAERS Safety Report 17981070 (Version 3)
Quarter: 2020Q3

REPORT INFORMATION
  Report Type: Spontaneous
  Country: ES (occurrence: ES)
  Receive Date: 20200704
  Receipt Date: 20200729
  Transmission Date: 20201103
  Serious: Yes (Hospitalization, Other)
  Sender: FDA-Public Use
  Company Number: NVSC2020ES187743

PATIENT
  Age: 22 Year
  Sex: Female

DRUGS (9)
  1. RITUXIMAB. [Suspect]
     Active Substance: RITUXIMAB
     Indication: DERMATOMYOSITIS
     Dosage: 1000 MG (DAY 0 AND DAY 15 EVERY FIVE MONTHS)
     Route: 040
     Dates: start: 2016
  2. AZATHIOPRINE. [Suspect]
     Active Substance: AZATHIOPRINE
     Dosage: 150 MG, QD
     Route: 065
     Dates: start: 201905
  3. PREDNISONE. [Suspect]
     Active Substance: PREDNISONE
     Indication: SYSTEMIC LUPUS ERYTHEMATOSUS
     Dosage: 60 MG, QD
     Route: 065
  4. RITUXIMAB. [Suspect]
     Active Substance: RITUXIMAB
     Dosage: 500 MG SINGLE DOSE
     Route: 040
     Dates: start: 201905
  5. AZATHIOPRINE. [Suspect]
     Active Substance: AZATHIOPRINE
     Dosage: 75 MG, QD
     Route: 065
     Dates: start: 2016
  6. AZATHIOPRINE. [Suspect]
     Active Substance: AZATHIOPRINE
     Dosage: 100 MG, QD
     Route: 065
     Dates: start: 2016
  7. AZATHIOPRINE. [Suspect]
     Active Substance: AZATHIOPRINE
     Indication: DERMATOMYOSITIS
     Dosage: 150 MG, QD
     Route: 065
     Dates: start: 2016
  8. HYDROXYCHLOROQUINE [Concomitant]
     Active Substance: HYDROXYCHLOROQUINE
     Indication: RASH
     Dosage: 200 MG, Q24H
     Route: 065
  9. HYDROXYCHLOROQUINE [Concomitant]
     Active Substance: HYDROXYCHLOROQUINE
     Indication: SYSTEMIC LUPUS ERYTHEMATOSUS

REACTIONS (16)
  - Cerebral toxoplasmosis [Recovered/Resolved]
  - Aggression [Unknown]
  - Headache [Recovering/Resolving]
  - Disorientation [Unknown]
  - Product use in unapproved indication [Unknown]
  - Facial paralysis [Recovering/Resolving]
  - Discomfort [Unknown]
  - Hiccups [Recovering/Resolving]
  - Reactive psychosis [Unknown]
  - Dysarthria [Unknown]
  - Nervousness [Unknown]
  - Off label use [Unknown]
  - Vomiting [Recovering/Resolving]
  - Dysphagia [Recovering/Resolving]
  - Intentional product use issue [Unknown]
  - Haematotoxicity [Unknown]

NARRATIVE: CASE EVENT DATE: 2020
